FAERS Safety Report 24251027 (Version 1)
Quarter: 2024Q3

REPORT INFORMATION
  Report Type: Report from Study
  Country: US (occurrence: US)
  Receive Date: 20240826
  Receipt Date: 20240826
  Transmission Date: 20241016
  Serious: Yes (Hospitalization, Other)
  Sender: ABBVIE
  Company Number: US-ABBVIE-5892783

PATIENT
  Age: 84 Year
  Sex: Female

DRUGS (2)
  1. RINVOQ [Suspect]
     Active Substance: UPADACITINIB
     Indication: Colitis ulcerative
     Dosage: STRENGTH: 15 MG
     Route: 048
     Dates: start: 20230610, end: 20230708
  2. RINVOQ [Suspect]
     Active Substance: UPADACITINIB
     Indication: Colitis ulcerative
     Dosage: STRENGTH: 15 MG
     Route: 048
     Dates: start: 20230708

REACTIONS (14)
  - Fall [Unknown]
  - Spinal compression fracture [Unknown]
  - Hip fracture [Unknown]
  - Arthralgia [Unknown]
  - Insomnia [Unknown]
  - Feeding disorder [Unknown]
  - Back pain [Unknown]
  - Pain [Unknown]
  - Muscle spasms [Unknown]
  - Fatigue [Unknown]
  - Asthenia [Unknown]
  - Nausea [Unknown]
  - Decreased appetite [Unknown]
  - Constipation [Unknown]

NARRATIVE: CASE EVENT DATE: 20240710
